FAERS Safety Report 12049566 (Version 2)
Quarter: 2016Q1

REPORT INFORMATION
  Report Type: Spontaneous
  Country: US (occurrence: US)
  Receive Date: 20160209
  Receipt Date: 20160315
  Transmission Date: 20160526
  Serious: Yes (Disabling, Other)
  Sender: FDA-Public Use
  Company Number: US-ABBVIE-15P-163-1422333-00

PATIENT

DRUGS (2)
  1. HUMIRA [Suspect]
     Active Substance: ADALIMUMAB
     Indication: COLITIS ULCERATIVE
  2. HUMIRA [Suspect]
     Active Substance: ADALIMUMAB
     Indication: CROHN^S DISEASE
     Route: 058
     Dates: start: 2012

REACTIONS (13)
  - Neuralgia [Not Recovered/Not Resolved]
  - Arthropathy [Unknown]
  - Crohn^s disease [Unknown]
  - Colitis ulcerative [Unknown]
  - Eye disorder [Unknown]
  - Visual impairment [Unknown]
  - Haemorrhage [Unknown]
  - Malaise [Unknown]
  - Nervous system disorder [Not Recovered/Not Resolved]
  - Peripheral motor neuropathy [Unknown]
  - Skin disorder [Unknown]
  - Emotional distress [Unknown]
  - Drug ineffective [Unknown]
